FAERS Safety Report 4315044-8 (Version None)
Quarter: 2004Q1

REPORT INFORMATION
  Report Type: 
  Country: None (occurrence: None)
  Receive Date: 20040309
  Receipt Date: 20040225
  Transmission Date: 20041129
  Serious: Yes (Life-Threatening, Hospitalization)
  Sender: FDA-Public Use
  Company Number: EWC031237486

PATIENT
  Age: 61 Year
  Sex: Male

DRUGS (8)
  1. ZYPREXA [Suspect]
     Indication: SCHIZOPHRENIA
     Dosage: 15 MG/DAY
     Dates: start: 20021101
  2. ANAFRANIL [Concomitant]
  3. CLONAZEPAM [Concomitant]
  4. ERGOTOP (NICERGOLINE) [Concomitant]
  5. LESCOL [Concomitant]
  6. TICLID [Concomitant]
  7. METOTHYRIN (THIAMAZOLE) [Concomitant]
  8. METOPROLOL TARTRATE [Concomitant]

REACTIONS (3)
  - BREAST DISORDER MALE [None]
  - BREAST ENGORGEMENT [None]
  - THYROTOXIC CRISIS [None]
